FAERS Safety Report 7584780-2 (Version None)
Quarter: 2011Q2

REPORT INFORMATION
  Report Type: 
  Country: None (occurrence: None)
  Receive Date: 20110630
  Receipt Date: 20110621
  Transmission Date: 20111010
  Serious: Yes (Other)
  Sender: FDA-Public Use
  Company Number: PHHY2011US55747

PATIENT
  Sex: Male

DRUGS (6)
  1. LEXAPRO [Concomitant]
     Dosage: 5 MG, UNK
  2. GILENYA [Suspect]
     Dosage: 0.5 MG, QD
     Route: 048
  3. XANAX [Concomitant]
     Dosage: 0.25 MG, UNK
  4. AMANTADINE HCL [Concomitant]
     Dosage: 100 MG, UNK
  5. VITAMIN B-12 [Concomitant]
     Dosage: 250 UG, UNK
  6. METFORMIN HCL [Concomitant]
     Dosage: 500 MG, UNK

REACTIONS (1)
  - SUICIDAL IDEATION [None]
